FAERS Safety Report 9595800 (Version 2)
Quarter: 2013Q4

REPORT INFORMATION
  Report Type: Spontaneous
  Country: US (occurrence: US)
  Receive Date: 20131004
  Receipt Date: 20131030
  Transmission Date: 20140711
  Serious: No
  Sender: FDA-Public Use
  Company Number: US-TEVA-436216USA

PATIENT
  Sex: Female

DRUGS (1)
  1. CLARAVIS [Suspect]
     Dosage: 40 MILLIGRAM DAILY;
     Route: 048
     Dates: start: 20130717, end: 20130819

REACTIONS (3)
  - Lipids increased [Unknown]
  - Blood triglycerides increased [Unknown]
  - Blood cholesterol abnormal [Unknown]
